FAERS Safety Report 9663765 (Version 1)
Quarter: 2013Q4

REPORT INFORMATION
  Report Type: Spontaneous
  Country: US (occurrence: None)
  Receive Date: 20131030
  Receipt Date: 20131030
  Transmission Date: 20140711
  Serious: No
  Sender: FDA-Public Use
  Company Number: None

PATIENT
  Age: 66 Year
  Sex: Female

DRUGS (1)
  1. TIZANIDINE HYDROCHLORIDE [Suspect]
     Indication: NERVE INJURY
     Dosage: 2X A DAY, 3 AT BEDTIME
     Dates: start: 20130906, end: 20131028

REACTIONS (2)
  - Drug effect decreased [None]
  - Product substitution issue [None]
